FAERS Safety Report 5093260-8 (Version None)
Quarter: 2006Q3

REPORT INFORMATION
  Report Type: 
  Country: None (occurrence: None)
  Receive Date: 20060829
  Receipt Date: 20060829
  Transmission Date: 20061208
  Serious: Yes (Other)
  Sender: FDA-Public Use
  Company Number: None

PATIENT
  Sex: Male
  Weight: 73.4827 kg

DRUGS (1)
  1. (MONAKET) 10 MG ISOSORBIDE MONITRATE GEN [Suspect]
     Indication: ANGINA PECTORIS
     Dosage: 10 MG BID BID PO 5 + YEARS AGO
     Route: 048

REACTIONS (2)
  - CHEST PAIN [None]
  - PHARMACEUTICAL PRODUCT COMPLAINT [None]
